FAERS Safety Report 10050110 (Version 1)
Quarter: 2014Q1

REPORT INFORMATION
  Report Type: Spontaneous
  Country: US (occurrence: None)
  Receive Date: 20140331
  Receipt Date: 20140331
  Transmission Date: 20141002
  Serious: Yes (Other)
  Sender: FDA-Public Use
  Company Number: None

PATIENT
  Age: 42 Year
  Sex: Female
  Weight: 62.6 kg

DRUGS (1)
  1. SYNTHROID 125 MCG [Suspect]
     Indication: HYPOTHYROIDISM
     Dosage: ONE, ONCE DAILY, TAKEN BY MOUTH
     Route: 048

REACTIONS (1)
  - Hepatic steatosis [None]
